FAERS Safety Report 24151477 (Version 1)
Quarter: 2024Q3

REPORT INFORMATION
  Report Type: Spontaneous
  Country: US (occurrence: US)
  Receive Date: 20240730
  Receipt Date: 20240730
  Transmission Date: 20241016
  Serious: No
  Sender: PERRIGO
  Company Number: US-PERRIGO-23US008845

PATIENT
  Age: 70 Year
  Sex: Female
  Weight: 81.633 kg

DRUGS (1)
  1. LORATADINE [Suspect]
     Active Substance: LORATADINE
     Indication: Headache
     Dosage: 10 MG, 1 OR 2 TIMES DAILY, PRN
     Route: 048
     Dates: start: 20230207

REACTIONS (1)
  - Drug effective for unapproved indication [Not Recovered/Not Resolved]

NARRATIVE: CASE EVENT DATE: 20230207
